FAERS Safety Report 24065909 (Version 4)
Quarter: 2024Q3

REPORT INFORMATION
  Report Type: Spontaneous
  Country: US (occurrence: US)
  Receive Date: 20240709
  Receipt Date: 20240919
  Transmission Date: 20241016
  Serious: Yes (Other)
  Sender: NOVARTIS
  Company Number: US-002147023-NVSC2024US141378

PATIENT
  Sex: Male

DRUGS (1)
  1. COSENTYX [Suspect]
     Active Substance: SECUKINUMAB
     Indication: Arthritis
     Dosage: 150 MG (6 DOSAGE FORM)
     Route: 065

REACTIONS (4)
  - Osteomyelitis [Unknown]
  - Infection [Unknown]
  - Peripheral swelling [Unknown]
  - Irritability [Unknown]
